FAERS Safety Report 8613102-0 (Version None)
Quarter: 2012Q3

REPORT INFORMATION
  Report Type: 
  Country: None (occurrence: None)
  Receive Date: 20120822
  Receipt Date: 20120713
  Transmission Date: 20120928
  Serious: No
  Sender: FDA-Public Use
  Company Number: SE-009507513-1207USA003821

PATIENT

DRUGS (2)
  1. PROPECIA [Suspect]
     Dosage: 1 MG, UNK
     Route: 048
     Dates: start: 20120517
  2. ROGAINE [Concomitant]

REACTIONS (4)
  - ERECTILE DYSFUNCTION [None]
  - DEPRESSION [None]
  - PREMATURE EJACULATION [None]
  - LOSS OF LIBIDO [None]
